FAERS Safety Report 11793739 (Version 1)
Quarter: 2015Q4

REPORT INFORMATION
  Report Type: Spontaneous
  Country: US (occurrence: None)
  Receive Date: 20151201
  Receipt Date: 20151201
  Transmission Date: 20160305
  Serious: Yes (Disabling, Other)
  Sender: FDA-Public Use
  Company Number: None

PATIENT
  Age: 32 Year
  Sex: Female
  Weight: 89.81 kg

DRUGS (10)
  1. ARICEPT [Concomitant]
     Active Substance: DONEPEZIL HYDROCHLORIDE
  2. VOLTAREN [Concomitant]
     Active Substance: DICLOFENAC SODIUM
  3. AMANTADINE [Concomitant]
     Active Substance: AMANTADINE
  4. TYLENOL [Concomitant]
     Active Substance: ACETAMINOPHEN
  5. FISH OIL [Concomitant]
     Active Substance: FISH OIL
  6. DONEPEZIL 10 MG ARICEPT GENERIC 10 MG [Suspect]
     Active Substance: DONEPEZIL
     Indication: AMNESIA
     Dosage: 1 PILL DAILY AT BED TIME ONCE DAILY TAKEN BY MOUTH
     Route: 048
     Dates: start: 20151125, end: 20151128
  7. MACROBID [Concomitant]
     Active Substance: NITROFURANTOIN\NITROFURANTOIN MONOHYDRATE
  8. PROVIGIL [Concomitant]
     Active Substance: MODAFINIL
  9. ZANAFLEX [Concomitant]
     Active Substance: TIZANIDINE HYDROCHLORIDE
  10. COQ10 [Concomitant]
     Active Substance: UBIDECARENONE

REACTIONS (5)
  - Myalgia [None]
  - Product substitution issue [None]
  - Memory impairment [None]
  - Fatigue [None]
  - Sedation [None]

NARRATIVE: CASE EVENT DATE: 20151125
